FAERS Safety Report 17127624 (Version 1)
Quarter: 2019Q4

REPORT INFORMATION
  Report Type: Spontaneous
  Country: JP (occurrence: JP)
  Receive Date: 20191209
  Receipt Date: 20191209
  Transmission Date: 20200122
  Serious: Yes (Other)
  Sender: FDA-Public Use
  Company Number: JP-ROCHE-2491815

PATIENT
  Age: 74 Year
  Sex: Male
  Weight: 45 kg

DRUGS (3)
  1. BEVACIZUMAB. [Suspect]
     Active Substance: BEVACIZUMAB
     Indication: COLON CANCER
     Route: 065
  2. CAPECITABINE. [Concomitant]
     Active Substance: CAPECITABINE
     Indication: COLON CANCER
     Route: 048
  3. OXALIPLATIN. [Concomitant]
     Active Substance: OXALIPLATIN
     Indication: COLON CANCER

REACTIONS (6)
  - Gastrointestinal haemorrhage [Unknown]
  - Abdominal distension [Unknown]
  - Wound dehiscence [Unknown]
  - Ileus paralytic [Unknown]
  - Haematochezia [Unknown]
  - Vomiting [Unknown]
